FAERS Safety Report 9865267 (Version 1)
Quarter: 2014Q1

REPORT INFORMATION
  Report Type: Spontaneous
  Country: US (occurrence: US)
  Receive Date: 20140203
  Receipt Date: 20140203
  Transmission Date: 20141002
  Serious: No
  Sender: FDA-Public Use
  Company Number: US-ALLERGAN-1300744US

PATIENT
  Age: 73 Year
  Sex: Female

DRUGS (7)
  1. RESTASIS [Suspect]
     Indication: DRY EYE
     Dosage: 2 GTT, BID
     Dates: start: 201212
  2. SYSTANE [Suspect]
     Indication: EYE LUBRICATION THERAPY
     Dosage: 2 GTT, PRN
  3. LOSARTAN [Concomitant]
     Indication: HYPERTENSION
     Dosage: 50 MG, UNK
     Route: 048
  4. VESICARE                           /01735901/ [Concomitant]
     Indication: HYPERTONIC BLADDER
     Dosage: 10 MG, UNK
     Route: 048
  5. PREMPRO [Concomitant]
     Indication: PRODUCT USED FOR UNKNOWN INDICATION
     Dosage: UNK
  6. OCUVITE                            /01053801/ [Concomitant]
     Indication: SUPPLEMENTATION THERAPY
     Dosage: UNK
     Route: 048
  7. STEROID INJECTION NOS [Concomitant]
     Indication: SCOLIOSIS
     Dosage: UNK

REACTIONS (4)
  - Inappropriate schedule of drug administration [Unknown]
  - Erythema of eyelid [Unknown]
  - Scleral hyperaemia [Unknown]
  - Eye discharge [Unknown]
